FAERS Safety Report 18211210 (Version 4)
Quarter: 2021Q1

REPORT INFORMATION
  Report Type: Report from Study
  Country: None (occurrence: US)
  Receive Date: 20200831
  Receipt Date: 20210310
  Transmission Date: 20210419
  Serious: Yes (Hospitalization, Congenital Anomaly, Other)
  Sender: FDA-Public Use
  Company Number: US-ABBVIE-20K-163-3384969-00

PATIENT
  Age: 50 Year
  Sex: Male
  Weight: 90.8 kg

DRUGS (24)
  1. FLONASE [Concomitant]
     Active Substance: FLUTICASONE PROPIONATE
     Indication: HYPERSENSITIVITY
  2. ALBUTEROL. [Concomitant]
     Active Substance: ALBUTEROL
     Indication: ASTHMA
  3. HUMIRA [Suspect]
     Active Substance: ADALIMUMAB
     Indication: ANKYLOSING SPONDYLITIS
     Dosage: CITRATE FREE
     Route: 058
     Dates: start: 2015, end: 201911
  4. ASPIRIN. [Concomitant]
     Active Substance: ASPIRIN
     Indication: BURNING SENSATION
  5. ZOFRAN [Concomitant]
     Active Substance: ONDANSETRON HYDROCHLORIDE
     Indication: NAUSEA
  6. SYNTHROID [Concomitant]
     Active Substance: LEVOTHYROXINE SODIUM
     Indication: HYPOTHYROIDISM
  7. ZOCOR [Concomitant]
     Active Substance: SIMVASTATIN
     Indication: BLOOD CHOLESTEROL INCREASED
  8. TYLENOL [Concomitant]
     Active Substance: ACETAMINOPHEN
     Indication: ARTHRALGIA
  9. BACLOFEN. [Concomitant]
     Active Substance: BACLOFEN
     Indication: BACK PAIN
  10. TRETINOIN. [Concomitant]
     Active Substance: TRETINOIN
     Indication: ACNE
  11. TYLENOL [Concomitant]
     Active Substance: ACETAMINOPHEN
     Indication: BACK PAIN
  12. ALLOPURINOL. [Concomitant]
     Active Substance: ALLOPURINOL
     Indication: BLOOD URIC ACID INCREASED
  13. BENZOQUIN [Concomitant]
     Indication: ACNE
  14. NEURONTIN [Concomitant]
     Active Substance: GABAPENTIN
     Indication: NEUROPATHY PERIPHERAL
  15. BREO ELLIPTA [Concomitant]
     Active Substance: FLUTICASONE FUROATE\VILANTEROL TRIFENATATE
     Indication: ASTHMA
  16. RESTASIS [Concomitant]
     Active Substance: CYCLOSPORINE
     Indication: DRY EYE
  17. HUMIRA [Suspect]
     Active Substance: ADALIMUMAB
     Dosage: CITRATE FREE
     Route: 058
     Dates: start: 201912
  18. NIACIN. [Concomitant]
     Active Substance: NIACIN
     Indication: BLOOD CHOLESTEROL INCREASED
  19. RELISTOR [Concomitant]
     Active Substance: METHYLNALTREXONE BROMIDE
     Indication: CONSTIPATION
  20. CLONAZEPAM. [Concomitant]
     Active Substance: CLONAZEPAM
     Indication: INSOMNIA
  21. DIFFERIN [Concomitant]
     Active Substance: ADAPALENE
     Indication: ACNE
  22. HUMIRA [Suspect]
     Active Substance: ADALIMUMAB
     Indication: SYSTEMIC LUPUS ERYTHEMATOSUS
     Dosage: CITRATE FREE
     Route: 058
     Dates: start: 201911, end: 201911
  23. OMEPRAZOLE. [Concomitant]
     Active Substance: OMEPRAZOLE
     Indication: ABDOMINAL DISCOMFORT
  24. ASPIRIN. [Concomitant]
     Active Substance: ASPIRIN
     Indication: BURNING SENSATION

REACTIONS (15)
  - Foot fracture [Recovering/Resolving]
  - Pain in extremity [Recovering/Resolving]
  - Foot operation [Unknown]
  - Therapeutic product effect incomplete [Recovered/Resolved]
  - Wound complication [Recovered/Resolved]
  - Mass [Recovered/Resolved]
  - Tendon injury [Recovered/Resolved]
  - Skin laceration [Recovered/Resolved]
  - Postoperative wound complication [Recovered/Resolved]
  - Off label use [Unknown]
  - Pain in extremity [Recovered/Resolved]
  - Wound infection staphylococcal [Recovered/Resolved]
  - Joint range of motion decreased [Not Recovered/Not Resolved]
  - Scar [Recovering/Resolving]
  - Purulence [Recovered/Resolved]

NARRATIVE: CASE EVENT DATE: 2015
